FAERS Safety Report 18849592 (Version 2)
Quarter: 2021Q1

REPORT INFORMATION
  Report Type: Report from Study
  Country: None (occurrence: US)
  Receive Date: 20210205
  Receipt Date: 20210224
  Transmission Date: 20210419
  Serious: Yes (Hospitalization)
  Sender: FDA-Public Use
  Company Number: US-ABBVIE-20K-163-3640073-00

PATIENT
  Sex: Female
  Weight: 90.8 kg

DRUGS (1)
  1. HUMIRA [Suspect]
     Active Substance: ADALIMUMAB
     Indication: RHEUMATOID ARTHRITIS
     Route: 058
     Dates: start: 2015, end: 20210107

REACTIONS (7)
  - Tendon rupture [Unknown]
  - Fall [Recovered/Resolved]
  - Pain in extremity [Unknown]
  - Fall [Recovered/Resolved]
  - Arthralgia [Unknown]
  - Pain [Not Recovered/Not Resolved]
  - Impaired healing [Unknown]

NARRATIVE: CASE EVENT DATE: 2019
